FAERS Safety Report 7533084-2 (Version None)
Quarter: 2011Q2

REPORT INFORMATION
  Report Type: 
  Country: None (occurrence: None)
  Receive Date: 20110608
  Receipt Date: 20110605
  Transmission Date: 20111010
  Serious: Yes (Death, Hospitalization)
  Sender: FDA-Public Use
  Company Number: PHHY2011CN49044

PATIENT
  Sex: Male

DRUGS (1)
  1. GLEEVEC [Suspect]
     Indication: CHRONIC MYELOID LEUKAEMIA
     Dosage: 400 MG, ONCE A DAY
     Route: 048
     Dates: start: 20100401

REACTIONS (2)
  - MYOCARDIAL INFARCTION [None]
  - ABDOMINAL PAIN [None]
